FAERS Safety Report 16949052 (Version 1)
Quarter: 2019Q4

REPORT INFORMATION
  Report Type: Spontaneous
  Country: CN (occurrence: CN)
  Receive Date: 20191023
  Receipt Date: 20191023
  Transmission Date: 20200122
  Serious: Yes (Hospitalization)
  Sender: FDA-Public Use
  Company Number: CN-MICRO LABS LIMITED-ML2019-02765

PATIENT
  Age: 36 Year
  Sex: Female

DRUGS (5)
  1. TIOPRONIN [Suspect]
     Active Substance: TIOPRONIN
     Indication: UNEVALUABLE THERAPY
     Dosage: 200 MG THREE TIMES DAILY
     Dates: start: 201609
  2. LEVOFLOXACIN. [Suspect]
     Active Substance: LEVOFLOXACIN
     Indication: PULMONARY TUBERCULOSIS
     Dosage: 400 MG QD PO
     Route: 048
  3. ETHAMBUTOL [Suspect]
     Active Substance: ETHAMBUTOL HYDROCHLORIDE
     Indication: PULMONARY TUBERCULOSIS
     Dosage: 750 MG QD PO
     Route: 048
  4. PASINIAZID [Suspect]
     Active Substance: PASINIAZID
     Indication: PULMONARY TUBERCULOSIS
     Dosage: 300 MG TID PO
     Route: 048
  5. RIFAMPICIN [Suspect]
     Active Substance: RIFAMPIN
     Indication: PULMONARY TUBERCULOSIS
     Dosage: 450 MG ORALLY TWICE WEEKLY
     Route: 048

REACTIONS (1)
  - Glomerulonephritis minimal lesion [Recovered/Resolved]
